FAERS Safety Report 18086027 (Version 1)
Quarter: 2020Q3

REPORT INFORMATION
  Report Type: Spontaneous
  Country: IT (occurrence: IT)
  Receive Date: 20200729
  Receipt Date: 20200729
  Transmission Date: 20201103
  Serious: Yes (Hospitalization)
  Sender: FDA-Public Use
  Company Number: IT-ACCORD-191506

PATIENT
  Age: 37 Year
  Sex: Female

DRUGS (4)
  1. SERPAX [Suspect]
     Active Substance: OXAZEPAM
     Indication: ANXIETY
     Route: 048
     Dates: start: 20200601, end: 20200601
  2. QUETIAPINE. [Suspect]
     Active Substance: QUETIAPINE
     Indication: BORDERLINE PERSONALITY DISORDER
     Route: 048
     Dates: start: 20200601, end: 20200601
  3. LYRICA [Concomitant]
     Active Substance: PREGABALIN
     Indication: GENERALISED ANXIETY DISORDER
     Route: 048
  4. STILNOX [Suspect]
     Active Substance: ZOLPIDEM TARTRATE
     Indication: INSOMNIA
     Route: 048
     Dates: start: 20200601, end: 20200601

REACTIONS (2)
  - Altered state of consciousness [Recovered/Resolved]
  - Intentional product misuse [Unknown]

NARRATIVE: CASE EVENT DATE: 20200601
